FAERS Safety Report 12971143 (Version 2)
Quarter: 2016Q4

REPORT INFORMATION
  Report Type: Spontaneous
  Country: US (occurrence: US)
  Receive Date: 20161123
  Receipt Date: 20161128
  Transmission Date: 20170207
  Serious: No
  Sender: FDA-Public Use
  Company Number: US-JAZZ-2016-US-019276

PATIENT
  Sex: Female

DRUGS (42)
  1. TRIAMTERENE AND HYDROCHLOROTHIAZID [Concomitant]
     Active Substance: HYDROCHLOROTHIAZIDE\TRIAMTERENE
  2. NASACORT [Concomitant]
     Active Substance: TRIAMCINOLONE ACETONIDE
  3. CLINDAMYCIN HCL [Concomitant]
     Active Substance: CLINDAMYCIN HYDROCHLORIDE
  4. FROVA [Concomitant]
     Active Substance: FROVATRIPTAN SUCCINATE
  5. NUVIGIL [Concomitant]
     Active Substance: ARMODAFINIL
  6. POTASSIUM IODIDE. [Concomitant]
     Active Substance: POTASSIUM IODIDE
  7. PREMARIN [Concomitant]
     Active Substance: ESTROGENS, CONJUGATED
  8. XYREM [Suspect]
     Active Substance: SODIUM OXYBATE
     Dosage: 4.5 G, BID
     Route: 048
     Dates: start: 201106, end: 2011
  9. CIPRO [Concomitant]
     Active Substance: CIPROFLOXACIN HYDROCHLORIDE
  10. LIDODERM [Concomitant]
     Active Substance: LIDOCAINE
  11. XYREM [Suspect]
     Active Substance: SODIUM OXYBATE
     Dosage: 3.75 G, BID
     Route: 048
     Dates: start: 201311, end: 201410
  12. AZITHROMYCIN ANHYDROUS. [Concomitant]
     Active Substance: AZITHROMYCIN ANHYDROUS
  13. ESGIC PLUS [Concomitant]
  14. NASONEX [Concomitant]
     Active Substance: MOMETASONE FUROATE
  15. ARMOUR THYROID [Concomitant]
     Active Substance: THYROID, PORCINE
  16. ESTRADIOL. [Concomitant]
     Active Substance: ESTRADIOL
  17. LEVOTHYROXINE. [Concomitant]
     Active Substance: LEVOTHYROXINE
  18. AMOXICILLIN TRIHYDRATE [Concomitant]
     Active Substance: AMOXICILLIN
  19. PHENERGAN [Concomitant]
     Active Substance: PROMETHAZINE HYDROCHLORIDE
  20. AMOXICILLIN. [Concomitant]
     Active Substance: AMOXICILLIN
  21. IMITREX [Concomitant]
     Active Substance: SUMATRIPTAN SUCCINATE
  22. ATIVAN [Concomitant]
     Active Substance: LORAZEPAM
  23. XYREM [Suspect]
     Active Substance: SODIUM OXYBATE
     Indication: NARCOLEPSY
     Dosage: 4 G, FIRST DOSE
     Route: 048
     Dates: start: 201012, end: 201106
  24. XYREM [Suspect]
     Active Substance: SODIUM OXYBATE
     Indication: CATAPLEXY
     Dosage: 2 G, SECOND DOSE
     Route: 048
     Dates: start: 201012, end: 201106
  25. LIOTHYRONINE SOD. [Concomitant]
  26. CYCLOBENZAPRINE [Concomitant]
     Active Substance: CYCLOBENZAPRINE
  27. FLEXERIL [Concomitant]
     Active Substance: CYCLOBENZAPRINE HYDROCHLORIDE
  28. AQUAPHOR                           /00298701/ [Concomitant]
  29. MULTIVITAMINS                      /00116001/ [Concomitant]
  30. PATANASE [Concomitant]
     Active Substance: OLOPATADINE HYDROCHLORIDE
  31. DYAZIDE [Concomitant]
     Active Substance: HYDROCHLOROTHIAZIDE\TRIAMTERENE
  32. CYMBALTA [Concomitant]
     Active Substance: DULOXETINE HYDROCHLORIDE
  33. AUGMENTIN [Concomitant]
     Active Substance: AMOXICILLIN\CLAVULANATE POTASSIUM
  34. MEDROL [Concomitant]
     Active Substance: METHYLPREDNISOLONE
  35. MUCINEX [Concomitant]
     Active Substance: GUAIFENESIN
  36. TESTOSTERONE CYPIONATE. [Concomitant]
     Active Substance: TESTOSTERONE CYPIONATE
  37. XYREM [Suspect]
     Active Substance: SODIUM OXYBATE
     Dosage: 4.5 G, BID
     Route: 048
     Dates: start: 201410
  38. GABAPENTIN. [Concomitant]
     Active Substance: GABAPENTIN
  39. HYDROCODONE-IBUPROFEN [Concomitant]
     Active Substance: HYDROCODONE BITARTRATE\IBUPROFEN
  40. MAXALT [Concomitant]
     Active Substance: RIZATRIPTAN BENZOATE
  41. MUSCLE RELAXANTS [Concomitant]
     Active Substance: UNSPECIFIED INGREDIENT
  42. RESTORIL [Concomitant]
     Active Substance: TEMAZEPAM

REACTIONS (1)
  - Urinary tract infection [Unknown]
